FAERS Safety Report 8101486-1 (Version None)
Quarter: 2012Q1

REPORT INFORMATION
  Report Type: 
  Country: None (occurrence: None)
  Receive Date: 20120129
  Receipt Date: 20111011
  Transmission Date: 20120608
  Serious: No
  Sender: FDA-Public Use
  Company Number: US-ABBOTT-11P-163-0863154-00

PATIENT
  Age: 57 Year
  Sex: Female

DRUGS (9)
  1. RESTASIS [Concomitant]
     Indication: DRY EYE
     Dosage: ONE DROP TO EACH EYE DAILY
  2. PATADAY [Concomitant]
     Indication: PRODUCT USED FOR UNKNOWN INDICATION
     Dosage: ONE DROP TO EACH EYE DAILY
  3. HYDROCODONE BITARTRATE [Concomitant]
     Indication: PAIN
     Dosage: 1-2 TIMES DAILY
  4. CYMBALTA [Concomitant]
     Indication: DEPRESSION
     Dosage: 30MG IN THE AM, 60MG IN THE EVENING
  5. CYMBALTA [Concomitant]
     Indication: PAIN MANAGEMENT
  6. SUPPLEMENTS [Concomitant]
     Indication: PRODUCT USED FOR UNKNOWN INDICATION
     Dosage: DAILY
  7. VITAMIN B-12 [Concomitant]
     Indication: PRODUCT USED FOR UNKNOWN INDICATION
  8. VITAMIN TAB [Concomitant]
     Indication: PRODUCT USED FOR UNKNOWN INDICATION
     Dosage: DAILY
  9. HUMIRA [Suspect]
     Indication: ANKYLOSING SPONDYLITIS
     Dates: start: 20110401

REACTIONS (4)
  - RASH PAPULAR [None]
  - EYE PRURITUS [None]
  - RASH [None]
  - RHINORRHOEA [None]
